FAERS Safety Report 5245001-9 (Version None)
Quarter: 2007Q1

REPORT INFORMATION
  Report Type: 
  Country: None (occurrence: None)
  Receive Date: 20070221
  Receipt Date: 20070221
  Transmission Date: 20070707
  Serious: Yes (Other)
  Sender: FDA-Public Use
  Company Number: None

PATIENT
  Age: 53 Year
  Sex: Female
  Weight: 72 kg

DRUGS (14)
  1. MULTIVITAMIN [Suspect]
     Indication: ILEUS
     Dosage: 10 ML IN TPN BAG DAILY IV
     Route: 042
     Dates: start: 20061207, end: 20061213
  2. INTRALIPID 30% [Suspect]
     Indication: ILEUS
     Dosage: 30% OF DAILY CALORIES IN TPN DAILY IV
     Route: 042
     Dates: start: 20061207, end: 20061213
  3. DUONEB [Concomitant]
  4. UNASYN [Concomitant]
  5. LOVENOX [Concomitant]
  6. DIFLUCAN [Concomitant]
  7. GENTAMICIN [Concomitant]
  8. LEVOTHYROXINE SODIUM [Concomitant]
  9. LEVOFLOXACIN [Concomitant]
  10. LORAZEPAM [Concomitant]
  11. METOCLOPRAMINE [Concomitant]
  12. ZOSYN [Concomitant]
  13. MORPHINE [Concomitant]
  14. PROCHLORERAZINE [Concomitant]

REACTIONS (13)
  - ADVERSE DRUG REACTION [None]
  - BLOOD GLUCOSE INCREASED [None]
  - BLOOD PRESSURE SYSTOLIC INCREASED [None]
  - BODY TEMPERATURE INCREASED [None]
  - CHEST PAIN [None]
  - DYSPNOEA [None]
  - FAT EMBOLISM [None]
  - HYPERHIDROSIS [None]
  - INFUSION RELATED REACTION [None]
  - OXYGEN SATURATION DECREASED [None]
  - RESPIRATORY RATE INCREASED [None]
  - SKIN DISCOLOURATION [None]
  - TREMOR [None]
